FAERS Safety Report 8282406-6 (Version None)
Quarter: 2012Q2

REPORT INFORMATION
  Report Type: 
  Country: None (occurrence: None)
  Receive Date: 20120411
  Receipt Date: 20120330
  Transmission Date: 20120825
  Serious: Yes (Hospitalization)
  Sender: FDA-Public Use
  Company Number: 2012SP017028

PATIENT
  Sex: Female
  Weight: 74.39 kg

DRUGS (2)
  1. TEMOZOLOMIDE [Suspect]
     Indication: GLIOBLASTOMA MULTIFORME
     Dosage: 75 MG/M2;QD;PO
     Route: 048
     Dates: start: 20120109, end: 20120213
  2. VORINOSTAT [Suspect]
     Indication: GLIOBLASTOMA MULTIFORME
     Dosage: 300 MG;QW;PO
     Route: 048
     Dates: start: 20120109, end: 20120213

REACTIONS (6)
  - PERIPHERAL MOTOR NEUROPATHY [None]
  - HEMIPARESIS [None]
  - DYSARTHRIA [None]
  - FEBRILE NEUTROPENIA [None]
  - NEOPLASM PROGRESSION [None]
  - NERVOUS SYSTEM DISORDER [None]
